FAERS Safety Report 8544374-9 (Version None)
Quarter: 2012Q3

REPORT INFORMATION
  Report Type: 
  Country: None (occurrence: None)
  Receive Date: 20120727
  Receipt Date: 20120724
  Transmission Date: 20120928
  Serious: Yes (Other)
  Sender: FDA-Public Use
  Company Number: JP-SANOFI-AVENTIS-2012SA048491

PATIENT
  Age: 60 Year
  Sex: Male

DRUGS (8)
  1. CISPLATIN [Suspect]
     Indication: GASTRIC CANCER STAGE I
     Dosage: DAY 1-5, TRIWEEKLY
     Route: 065
     Dates: start: 20101001
  2. FLUOROURACIL [Suspect]
     Indication: GASTRIC CANCER STAGE I
     Dosage: ON DAY 1-5, TRIWEEKLY
     Route: 065
     Dates: start: 20101001
  3. THERAPEUTIC RADIOPHARMACEUTICALS [Suspect]
     Indication: GASTRIC CANCER STAGE I
     Dosage: 60 GY
     Route: 065
     Dates: start: 20101001
  4. TAXOTERE [Suspect]
     Dosage: ON DAY 1
     Route: 065
     Dates: start: 20101001
  5. TAXOTERE [Suspect]
     Indication: GASTRIC CANCER STAGE I
     Dosage: ON DAY 1
     Route: 065
     Dates: start: 20101001
  6. CISPLATIN [Suspect]
     Dosage: DAY 1-5, TRIWEEKLY
     Route: 065
     Dates: start: 20101001
  7. FLUOROURACIL [Suspect]
     Dosage: ON DAY 1-5, TRIWEEKLY
     Route: 065
     Dates: start: 20101001
  8. THERAPEUTIC RADIOPHARMACEUTICALS [Suspect]
     Dosage: 60 GY
     Route: 065
     Dates: start: 20101001

REACTIONS (3)
  - DYSPHAGIA [None]
  - OESOPHAGEAL STENOSIS [None]
  - FLUID INTAKE REDUCED [None]
